FAERS Safety Report 11149958 (Version 1)
Quarter: 2015Q2

REPORT INFORMATION
  Report Type: Spontaneous
  Country: US (occurrence: US)
  Receive Date: 20150529
  Receipt Date: 20150529
  Transmission Date: 20150821
  Serious: No
  Sender: FDA-Public Use
  Company Number: US-GLAXOSMITHKLINE-US2015073333

PATIENT
  Sex: Female

DRUGS (6)
  1. BENLYSTA [Suspect]
     Active Substance: BELIMUMAB
     Indication: SYSTEMIC LUPUS ERYTHEMATOSUS
     Dosage: UNK, U
     Route: 065
     Dates: start: 20140301
  2. FISH OIL [Concomitant]
     Active Substance: FISH OIL
  3. CLONAZEPAM. [Concomitant]
     Active Substance: CLONAZEPAM
  4. LOSARTAN [Concomitant]
     Active Substance: LOSARTAN
  5. IMURAN [Concomitant]
     Active Substance: AZATHIOPRINE
  6. LABETALOL [Concomitant]
     Active Substance: LABETALOL\LABETALOL HYDROCHLORIDE

REACTIONS (2)
  - Local swelling [Recovering/Resolving]
  - Infection [Unknown]
